FAERS Safety Report 26042545 (Version 2)
Quarter: 2025Q4

REPORT INFORMATION
  Report Type: Spontaneous
  Country: US (occurrence: US)
  Receive Date: 20251113
  Receipt Date: 20251118
  Transmission Date: 20260117
  Serious: Yes (Hospitalization)
  Sender: MALLINCKRODT
  Company Number: US-MALLINCKRODT-MNK202507076

PATIENT
  Age: 71 Year
  Sex: Male

DRUGS (5)
  1. CORTICOTROPIN [Suspect]
     Active Substance: CORTICOTROPIN
     Indication: IgA nephropathy
     Dosage: 40 UNITS
     Route: 058
     Dates: start: 202507
  2. CORTICOTROPIN [Suspect]
     Active Substance: CORTICOTROPIN
     Indication: Haematuria
  3. METOPROLOL [Concomitant]
     Active Substance: METOPROLOL
     Dosage: UNKNOWN
  4. ELIQUIS [Concomitant]
     Active Substance: APIXABAN
     Dosage: UNKNOWN
  5. DIGOXIN [Concomitant]
     Active Substance: DIGOXIN
     Dosage: UNKNOWN

REACTIONS (2)
  - Heart rate increased [Unknown]
  - Rash [Unknown]

NARRATIVE: CASE EVENT DATE: 20250101
